FAERS Safety Report 9313432 (Version 3)
Quarter: 2013Q3

REPORT INFORMATION
  Report Type: Report from Study
  Country: US (occurrence: US)
  Receive Date: 20130528
  Receipt Date: 20130717
  Transmission Date: 20140515
  Serious: Yes (Hospitalization, Other)
  Sender: FDA-Public Use
  Company Number: US-ROCHE-1228396

PATIENT
  Age: 82 Year
  Sex: Female
  Weight: 64.01 kg

DRUGS (2)
  1. LUCENTIS [Suspect]
     Indication: AGE-RELATED MACULAR DEGENERATION
     Dosage: RIGHT EYE; EVERY 2-3 MONTHS
     Route: 031
     Dates: start: 201105, end: 201206
  2. LIPITOR [Concomitant]
     Indication: BLOOD CHOLESTEROL
     Route: 048

REACTIONS (1)
  - Ischaemic stroke [Recovered/Resolved]
